FAERS Safety Report 9733111 (Version 1)
Quarter: 2013Q4

REPORT INFORMATION
  Report Type: Spontaneous
  Country: US (occurrence: US)
  Receive Date: 20131205
  Receipt Date: 20131205
  Transmission Date: 20140711
  Serious: Yes (Hospitalization)
  Sender: FDA-Public Use
  Company Number: PHHY2013US135669

PATIENT
  Age: 60 Year
  Sex: Female

DRUGS (2)
  1. HEPARIN [Suspect]
     Route: 042
  2. WARFARIN [Concomitant]

REACTIONS (11)
  - Gangrene [Unknown]
  - Renal failure acute [Unknown]
  - Pain in extremity [Unknown]
  - Device occlusion [Unknown]
  - Heparin-induced thrombocytopenia [Recovering/Resolving]
  - Platelet count decreased [Recovered/Resolved]
  - Thrombocytopenia [Recovered/Resolved]
  - Deep vein thrombosis [Unknown]
  - Vena cava thrombosis [Unknown]
  - Pelvic venous thrombosis [Unknown]
  - Skin discolouration [Unknown]
